FAERS Safety Report 8437570 (Version 6)
Quarter: 2013Q1

REPORT INFORMATION
  Report Type: Spontaneous
  Country: US (occurrence: US)
  Receive Date: 20120302
  Receipt Date: 20130307
  Transmission Date: 20140127
  Serious: No
  Sender: FDA-Public Use
  Company Number: US-PFIZER INC-2012051363

PATIENT
  Age: 50 Year
  Sex: Female
  Weight: 76.2 kg

DRUGS (5)
  1. EFFEXOR XR [Suspect]
     Dosage: UNK
  2. EFFEXOR [Suspect]
     Indication: ANXIETY
     Dosage: 37.5 MG, 1X/DAY
     Route: 048
     Dates: end: 200702
  3. EFFEXOR [Suspect]
     Dosage: 187.5 MG, 1X/DAY
     Route: 048
     Dates: start: 200702, end: 200704
  4. EFFEXOR [Suspect]
     Dosage: 37.5 MG, 1X/DAY
     Route: 048
     Dates: start: 200704, end: 201112
  5. PROTONIX [Concomitant]
     Dosage: UNK

REACTIONS (7)
  - Bladder irritation [Unknown]
  - Sleep disorder [Unknown]
  - Headache [Unknown]
  - Bladder discomfort [Unknown]
  - Migraine [Unknown]
  - Urinary incontinence [Unknown]
  - Micturition urgency [Unknown]
